FAERS Safety Report 23307015 (Version 5)
Quarter: 2024Q1

REPORT INFORMATION
  Report Type: Report from Study
  Country: US (occurrence: US)
  Receive Date: 20231218
  Receipt Date: 20240322
  Transmission Date: 20240410
  Serious: Yes (Hospitalization, Other)
  Sender: FDA-Public Use
  Company Number: US-ACADIA PHARMACEUTICALS INC.-ACA-2023-TRF-005423

PATIENT
  Age: 14 Year
  Sex: Female

DRUGS (10)
  1. DAYBUE [Suspect]
     Active Substance: TROFINETIDE
     Indication: Rett syndrome
     Dosage: 20 MILLILITER, BID VIA G-TUBE
     Dates: start: 202311
  2. DAYBUE [Suspect]
     Active Substance: TROFINETIDE
     Dosage: 30 MILLILITER, BID VIA G-TUBE
     Dates: start: 20231124
  3. DAYBUE [Suspect]
     Active Substance: TROFINETIDE
     Dosage: 20 MILLILITER BID VIA G-TUBE
  4. DAYBUE [Suspect]
     Active Substance: TROFINETIDE
     Dosage: 10 MILLILITER BID VIA G-TUBE
  5. DAYBUE [Suspect]
     Active Substance: TROFINETIDE
     Dosage: 10 MILLILITER, BID VIA G-TUBE
     Dates: end: 20231215
  6. DAYBUE [Suspect]
     Active Substance: TROFINETIDE
     Dosage: 2.5 MILLILITER, BID
     Dates: end: 20231218
  7. DAYBUE [Suspect]
     Active Substance: TROFINETIDE
     Dosage: 2.5 MILLILITER, BID VIA G-TUBE
     Dates: start: 20240107
  8. DAYBUE [Suspect]
     Active Substance: TROFINETIDE
     Dosage: 2.5 MILLILITER, QD (IN THE AM) VIA G-TUBE
  9. DAYBUE [Suspect]
     Active Substance: TROFINETIDE
     Dosage: 20-30 ML, BID, VIA G TUBE
  10. DAYBUE [Suspect]
     Active Substance: TROFINETIDE
     Dosage: 40 MILLILITER, BID
     Dates: end: 20240201

REACTIONS (17)
  - Constipation [Recovered/Resolved]
  - Intestinal obstruction [Recovered/Resolved]
  - Seizure [Unknown]
  - Regurgitation [Unknown]
  - Psychomotor hyperactivity [Not Recovered/Not Resolved]
  - Insomnia [Not Recovered/Not Resolved]
  - Inappropriate schedule of product administration [Not Recovered/Not Resolved]
  - Product dose omission issue [Recovered/Resolved]
  - Underdose [Unknown]
  - Aggression [Not Recovered/Not Resolved]
  - Bowel movement irregularity [Not Recovered/Not Resolved]
  - Rash [Not Recovered/Not Resolved]
  - Psychomotor hyperactivity [Not Recovered/Not Resolved]
  - Dyskinesia [Unknown]
  - Diarrhoea [Not Recovered/Not Resolved]
  - Vomiting [Not Recovered/Not Resolved]
  - Diarrhoea [Not Recovered/Not Resolved]

NARRATIVE: CASE EVENT DATE: 20231101
